FAERS Safety Report 11687225 (Version 1)
Quarter: 2015Q4

REPORT INFORMATION
  Report Type: Spontaneous
  Country: GB (occurrence: GB)
  Receive Date: 20151030
  Receipt Date: 20151030
  Transmission Date: 20160304
  Serious: Yes (Hospitalization, Other)
  Sender: FDA-Public Use
  Company Number: GB-PFIZER INC-2015361393

PATIENT
  Age: 37 Year
  Sex: Male
  Weight: 73 kg

DRUGS (12)
  1. TEGRETOL [Concomitant]
     Active Substance: CARBAMAZEPINE
     Dosage: 300 MG, 2X/DAY
     Dates: start: 20150616
  2. EPADERM [Concomitant]
     Active Substance: MINERAL OIL\PETROLATUM\WAX, EMULSIFYING
     Indication: DRY SKIN
     Dosage: UNK, 2X/DAY
     Dates: start: 20150923
  3. PARACETAMOL [Concomitant]
     Active Substance: ACETAMINOPHEN
     Dosage: 2 DF, 4X/DAY
     Dates: start: 20150923
  4. ZUCLOPENTHIXOL DIHYDROCHLORIDE [Concomitant]
     Dosage: 1 DF, 2X/DAY
     Dates: start: 20141203
  5. BETAMETHASONE VALERATE. [Concomitant]
     Active Substance: BETAMETHASONE VALERATE
     Indication: SKIN LESION
     Dosage: 1 DF, 2X/DAY
     Route: 003
     Dates: start: 20150928, end: 20151012
  6. CLOBAZAM [Concomitant]
     Active Substance: CLOBAZAM
     Dosage: 1 DF, AS NEEDED
     Dates: start: 20141203
  7. CLOPIXOL [Concomitant]
     Active Substance: ZUCLOPENTHIXOL ACETATE
     Dosage: 1 DF, 2X/DAY
     Dates: start: 20141203
  8. PHENYTOIN. [Suspect]
     Active Substance: PHENYTOIN
     Dosage: UNK
     Dates: start: 20150924
  9. BECONASE AQ [Concomitant]
     Active Substance: BECLOMETHASONE DIPROPIONATE MONOHYDRATE
     Dosage: 2 DF, 2X/DAY
     Route: 055
     Dates: start: 20141203
  10. E45 [Concomitant]
     Active Substance: LANOLIN\LIGHT MINERAL OIL\PARAFFIN
     Indication: DRY SKIN
     Dosage: 1 DF, 2X/DAY
     Dates: start: 20150715, end: 20150812
  11. LAMOTRIGINE. [Concomitant]
     Active Substance: LAMOTRIGINE
     Dosage: 5 DF, DAILY 2
     Dates: start: 20150616
  12. SODIUM VALPROATE [Concomitant]
     Active Substance: VALPROATE SODIUM
     Dosage: 5 DF, 2X/DAY
     Dates: start: 20141203

REACTIONS (1)
  - Neuropsychiatric syndrome [Recovered/Resolved]

NARRATIVE: CASE EVENT DATE: 20150930
